FAERS Safety Report 7031586-9 (Version None)
Quarter: 2010Q4

REPORT INFORMATION
  Report Type: 
  Country: None (occurrence: None)
  Receive Date: 20101006
  Receipt Date: 20100929
  Transmission Date: 20110411
  Serious: Yes (Hospitalization)
  Sender: FDA-Public Use
  Company Number: PR-AMGEN-KDL443014

PATIENT
  Sex: Female
  Weight: 72.6 kg

DRUGS (7)
  1. PROCRIT [Suspect]
     Indication: RENAL FAILURE CHRONIC
     Route: 058
     Dates: start: 20080101
  2. TAMOXIFEN CITRATE [Concomitant]
     Dates: start: 20100101
  3. LANTUS [Concomitant]
     Route: 058
  4. HUMULIN R [Concomitant]
     Route: 058
  5. AVAPRO [Concomitant]
     Route: 048
  6. CARVEDILOL [Concomitant]
     Route: 048
  7. SYNTHROID [Concomitant]
     Route: 048

REACTIONS (6)
  - BLOOD CHOLESTEROL INCREASED [None]
  - BLOOD POTASSIUM INCREASED [None]
  - BREAST CANCER [None]
  - CHEST PAIN [None]
  - OEDEMA PERIPHERAL [None]
  - RASH [None]
